FAERS Safety Report 8004114-9 (Version None)
Quarter: 2011Q4

REPORT INFORMATION
  Report Type: 
  Country: None (occurrence: None)
  Receive Date: 20111222
  Receipt Date: 20111212
  Transmission Date: 20120403
  Serious: Yes (Hospitalization)
  Sender: FDA-Public Use
  Company Number: US-ASTRAZENECA-2011SE66705

PATIENT
  Age: 21745 Day
  Sex: Female
  Weight: 101.6 kg

DRUGS (20)
  1. SEROQUEL [Suspect]
     Route: 048
  2. XANAX [Concomitant]
     Indication: ANXIETY
     Route: 048
     Dates: start: 20090101
  3. BUSPAR [Concomitant]
     Indication: MAJOR DEPRESSION
     Route: 048
  4. DOXEPIN [Concomitant]
     Indication: MAJOR DEPRESSION
     Route: 048
  5. SEROQUEL [Suspect]
     Route: 048
     Dates: start: 20110126
  6. SEROQUEL [Suspect]
     Route: 048
     Dates: start: 20110126
  7. METOPROLOL TARTRATE [Concomitant]
     Indication: HYPERTENSION
     Route: 048
     Dates: start: 20090101
  8. ADVAIR DISKUS 100/50 [Concomitant]
     Indication: ASTHMA
     Dosage: 110 UG, 1 PUFF TWO TIMES A DAY
     Route: 055
  9. PROVENTIL-HFA [Concomitant]
     Dosage: 90 UG, TWO PUFS FOUR TIMES A DAY
     Route: 055
  10. SEROQUEL [Suspect]
     Indication: DEPRESSION
     Route: 048
     Dates: start: 19970101
  11. SEROQUEL [Suspect]
     Indication: ANXIETY
     Route: 048
     Dates: start: 19970101
  12. SEROQUEL [Suspect]
     Route: 048
  13. NAPROSYN [Concomitant]
     Indication: PAIN
     Route: 048
     Dates: start: 20110901
  14. LYRICA [Concomitant]
     Indication: FIBROMYALGIA
     Route: 048
  15. EFFEXOR [Concomitant]
  16. TOPAMAX [Concomitant]
     Route: 048
  17. LISINOPRIL [Concomitant]
     Indication: HYPERTENSION
     Route: 048
  18. TEMAZEPAM [Concomitant]
     Route: 048
  19. HYDROCHLOROTHIAZIDE [Concomitant]
     Route: 048
  20. NORCO [Concomitant]
     Indication: PAIN
     Dosage: 5/325 MG AS REQUIRED
     Route: 048

REACTIONS (3)
  - ACCIDENTAL OVERDOSE [None]
  - SINUS ARRHYTHMIA [None]
  - FEELING ABNORMAL [None]
